FAERS Safety Report 20201803 (Version 1)
Quarter: 2021Q4

REPORT INFORMATION
  Report Type: Spontaneous
  Country: US (occurrence: US)
  Receive Date: 20211217
  Receipt Date: 20211217
  Transmission Date: 20220303
  Serious: Yes (Other)
  Sender: FDA-Public Use
  Company Number: US-GLAUKOS-AVE-2021-0318-AE

PATIENT
  Sex: Female

DRUGS (2)
  1. PHOTREXA VISCOUS [Suspect]
     Active Substance: RIBOFLAVIN 5^-PHOSPHATE SODIUM
     Indication: Keratoconus
     Route: 047
     Dates: start: 20211119, end: 20211119
  2. DEVICE [Suspect]
     Active Substance: DEVICE
     Indication: Keratoconus
     Route: 047
     Dates: start: 20211119, end: 20211119

REACTIONS (3)
  - Corneal perforation [Recovered/Resolved]
  - Keratoplasty [Unknown]
  - Keratitis bacterial [Unknown]

NARRATIVE: CASE EVENT DATE: 20211123
